FAERS Safety Report 18732370 (Version 2)
Quarter: 2021Q1

REPORT INFORMATION
  Report Type: Spontaneous
  Country: AR (occurrence: AR)
  Receive Date: 20210113
  Receipt Date: 20210119
  Transmission Date: 20210419
  Serious: Yes (Hospitalization)
  Sender: FDA-Public Use
  Company Number: AR-AMGEN-ARGSP2021004232

PATIENT
  Age: 63 Year
  Sex: Female

DRUGS (1)
  1. ENBREL [Suspect]
     Active Substance: ETANERCEPT
     Indication: RHEUMATOID ARTHRITIS
     Dosage: 50 MG, WEEKLY
     Route: 065
     Dates: start: 20131218, end: 202011

REACTIONS (4)
  - Drug ineffective [Unknown]
  - Localised infection [Unknown]
  - Illness [Unknown]
  - Joint swelling [Unknown]

NARRATIVE: CASE EVENT DATE: 202011
